FAERS Safety Report 5028987-7 (Version None)
Quarter: 2006Q2

REPORT INFORMATION
  Report Type: 
  Country: None (occurrence: None)
  Receive Date: 20060501
  Receipt Date: 20060125
  Transmission Date: 20061013
  Serious: No
  Sender: FDA-Public Use
  Company Number: 200610915US

PATIENT
  Age: 13 Year
  Sex: Female
  Weight: 68.2 kg

DRUGS (4)
  1. KETEK [Suspect]
     Indication: SINUSITIS
     Dosage: 800 MG QD PO
     Route: 048
     Dates: start: 20051001, end: 20050101
  2. KETEK [Suspect]
     Indication: TONSILLITIS
     Dosage: 800 MG QD PO
     Route: 048
     Dates: start: 20051001, end: 20050101
  3. KETEK [Suspect]
     Indication: SINUSITIS
     Dosage: 800 MG QD PO
     Route: 048
     Dates: start: 20060124, end: 20060124
  4. KETEK [Suspect]
     Indication: TONSILLITIS
     Dosage: 800 MG QD PO
     Route: 048
     Dates: start: 20060124, end: 20060124

REACTIONS (4)
  - HEADACHE [None]
  - SINUSITIS [None]
  - TONSILLITIS [None]
  - VISION BLURRED [None]
